FAERS Safety Report 4642280-3 (Version None)
Quarter: 2005Q2

REPORT INFORMATION
  Report Type: 
  Country: None (occurrence: None)
  Receive Date: 20050422
  Receipt Date: 20030411
  Transmission Date: 20051028
  Serious: Yes (Life-Threatening, Hospitalization, Other)
  Sender: FDA-Public Use
  Company Number: US-BRISTOL-MYERS SQUIBB COMPANY-12240164

PATIENT
  Age: 61 Year
  Sex: Male

DRUGS (19)
  1. CISPLATIN [Suspect]
     Indication: TONGUE CANCER METASTATIC
     Route: 042
     Dates: start: 20001031, end: 20001031
  2. CETUXIMAB [Suspect]
     Indication: TONGUE CANCER METASTATIC
     Dosage: LOADING DOSE 2ND DOSE: 250 MG/M^2 ON 07NOV00
     Route: 042
     Dates: start: 20001031, end: 20001031
  3. RADIATION THERAPY [Suspect]
     Indication: TONGUE CANCER METASTATIC
  4. ECOTRIN [Concomitant]
     Dates: start: 20001031, end: 20001211
  5. ERYTHROMYCIN [Concomitant]
     Route: 061
     Dates: start: 20001111, end: 20001125
  6. COLACE [Concomitant]
     Indication: CONSTIPATION
     Dates: start: 20001031, end: 20001208
  7. DIPHENHYDRAMINE HCL [Concomitant]
     Dates: start: 20001111, end: 20001208
  8. SODIUM BICARBONATE [Concomitant]
     Indication: STOMATITIS
     Dates: start: 20001031, end: 20001208
  9. SENNA [Concomitant]
     Dates: start: 20001110, end: 20001207
  10. PROCHLORPERAZINE [Concomitant]
     Dates: start: 20001110, end: 20001113
  11. AMBIEN [Concomitant]
     Dates: start: 20001110, end: 20001119
  12. LACTULOSE [Concomitant]
     Dates: start: 20001110, end: 20001113
  13. KAOLIN [Concomitant]
     Dates: start: 20001110, end: 20001208
  14. POTASSIUM CHLORIDE [Concomitant]
     Route: 042
     Dates: start: 20001113, end: 20001114
  15. MAGNESIUM [Concomitant]
     Route: 042
     Dates: start: 20001113, end: 20001114
  16. ATIVAN [Concomitant]
     Dates: start: 20001031
  17. NORVASC [Concomitant]
     Indication: CHEST PAIN
     Dates: start: 20001006
  18. ZOCOR [Concomitant]
     Indication: HYPERCHOLESTEROLAEMIA
     Dates: start: 20001006
  19. PREVACID [Concomitant]
     Indication: ULCER

REACTIONS (13)
  - ATRIAL FIBRILLATION [None]
  - CARDIAC OUTPUT DECREASED [None]
  - CATHETER RELATED INFECTION [None]
  - CELLULITIS [None]
  - DEHYDRATION [None]
  - DIARRHOEA [None]
  - HYPOTENSION [None]
  - LYMPHADENOPATHY [None]
  - NAUSEA [None]
  - PYREXIA [None]
  - STAPHYLOCOCCAL SEPSIS [None]
  - URINARY TRACT INFECTION BACTERIAL [None]
  - VOMITING [None]
